FAERS Safety Report 4391497-4 (Version None)
Quarter: 2004Q3

REPORT INFORMATION
  Report Type: 
  Country: None (occurrence: None)
  Receive Date: 20040701
  Receipt Date: 20040622
  Transmission Date: 20050211
  Serious: Yes (Hospitalization)
  Sender: FDA-Public Use
  Company Number: 163-20785-04060588

PATIENT
  Age: 38 Year
  Sex: Female

DRUGS (1)
  1. THALOMID [Suspect]
     Indication: MULTIPLE MYELOMA
     Dosage: 50 MG, DAILY, ORAL
     Route: 048
     Dates: start: 19981116, end: 20030730

REACTIONS (4)
  - LUNG CONSOLIDATION [None]
  - RENAL FAILURE [None]
  - SUBDURAL HAEMATOMA [None]
  - TRANSPLANT [None]
